FAERS Safety Report 24625184 (Version 1)
Quarter: 2024Q4

REPORT INFORMATION
  Report Type: Report from Study
  Country: NL (occurrence: NL)
  Receive Date: 20241115
  Receipt Date: 20241115
  Transmission Date: 20250115
  Serious: Yes (Other)
  Sender: ABBVIE
  Company Number: NL-ABBVIE-5997102

PATIENT
  Age: 78 Year
  Sex: Male

DRUGS (5)
  1. CARBIDOPA\LEVODOPA [Suspect]
     Active Substance: CARBIDOPA\LEVODOPA
     Indication: Parkinson^s disease
     Dosage: MD: 7.0ML; CD: 4.4ML/H; ED: 2.00ML?DURATION TEXT: REMAINS AT 16 HOURS
     Route: 050
     Dates: start: 20240105, end: 20240418
  2. CARBIDOPA\LEVODOPA [Suspect]
     Active Substance: CARBIDOPA\LEVODOPA
     Dosage: MD: 7.0ML; CD: 4.4ML/H; ED: 2.00ML?DURATION TEXT: REMAINS AT 16 HOURS
     Route: 050
     Dates: start: 20240418
  3. CARBIDOPA\LEVODOPA [Suspect]
     Active Substance: CARBIDOPA\LEVODOPA
     Dosage: LAST ADMINISTRATION DATE 2024
     Route: 050
     Dates: start: 20210728
  4. POLYETHYLENE GLYCOLS [Concomitant]
     Active Substance: POLYETHYLENE GLYCOLS
     Indication: Abnormal faeces
  5. APOMORPHINE [Concomitant]
     Active Substance: APOMORPHINE
     Indication: Product used for unknown indication

REACTIONS (21)
  - Transient ischaemic attack [Recovered/Resolved]
  - Stoma site discharge [Not Recovered/Not Resolved]
  - Malaise [Recovered/Resolved]
  - Anxiety [Not Recovered/Not Resolved]
  - Dystonia [Not Recovered/Not Resolved]
  - Muscle rigidity [Not Recovered/Not Resolved]
  - Off label use [Not Recovered/Not Resolved]
  - Dementia [Not Recovered/Not Resolved]
  - Dyskinesia [Recovering/Resolving]
  - On and off phenomenon [Not Recovered/Not Resolved]
  - Fatigue [Not Recovered/Not Resolved]
  - Device dislocation [Not Recovered/Not Resolved]
  - Cognitive disorder [Not Recovered/Not Resolved]
  - Somnolence [Not Recovered/Not Resolved]
  - Stoma site reaction [Not Recovered/Not Resolved]
  - Stoma site erythema [Not Recovered/Not Resolved]
  - Restlessness [Recovering/Resolving]
  - Cognitive disorder [Unknown]
  - Stoma site haemorrhage [Unknown]
  - Abnormal faeces [Unknown]
  - Appetite disorder [Unknown]

NARRATIVE: CASE EVENT DATE: 20240101
